APPROVED DRUG PRODUCT: TOBRAMYCIN
Active Ingredient: TOBRAMYCIN
Strength: 0.3%
Dosage Form/Route: SOLUTION/DROPS;OPHTHALMIC
Application: A064052 | Product #001 | TE Code: AT
Applicant: BAUSCH AND LOMB PHARMACEUTICALS INC
Approved: Nov 29, 1993 | RLD: No | RS: No | Type: RX